FAERS Safety Report 10710939 (Version 1)
Quarter: 2015Q1

REPORT INFORMATION
  Report Type: Spontaneous
  Country: US (occurrence: US)
  Receive Date: 20150114
  Receipt Date: 20150114
  Transmission Date: 20150721
  Serious: Yes (Congenital Anomaly, Other)
  Sender: FDA-Public Use
  Company Number: US-ABBVIE-15P-163-1330793-00

PATIENT
  Sex: Male

DRUGS (1)
  1. DEPAKOTE [Suspect]
     Active Substance: DIVALPROEX SODIUM
     Indication: MATERNAL EXPOSURE TIMING UNSPECIFIED
     Route: 064

REACTIONS (25)
  - Depression [Unknown]
  - Post procedural complication [Unknown]
  - Talipes [Unknown]
  - Pain [Unknown]
  - Congenital anomaly [Unknown]
  - Nervous system disorder [Unknown]
  - Injury [Unknown]
  - Cognitive disorder [Unknown]
  - Aggression [Unknown]
  - Psychomotor hyperactivity [Unknown]
  - Anger [Unknown]
  - Executive dysfunction [Unknown]
  - Unevaluable event [Unknown]
  - Multiple injuries [Unknown]
  - Mental impairment [Unknown]
  - Emotional disorder [Unknown]
  - Anhedonia [Unknown]
  - Emotional distress [Unknown]
  - Negativism [Unknown]
  - Anxiety [Unknown]
  - Economic problem [Unknown]
  - Abnormal behaviour [Unknown]
  - Speech disorder developmental [Unknown]
  - Social problem [Unknown]
  - Communication disorder [Unknown]
